FAERS Safety Report 6986085-7 (Version None)
Quarter: 2010Q3

REPORT INFORMATION
  Report Type: 
  Country: None (occurrence: None)
  Receive Date: 20100910
  Receipt Date: 20100826
  Transmission Date: 20110219
  Serious: Yes (Other)
  Sender: FDA-Public Use
  Company Number: 017847

PATIENT
  Sex: Female

DRUGS (1)
  1. CIMZIA [Suspect]
     Dosage: SUBCUTANEOUS
     Route: 058
     Dates: start: 20100601

REACTIONS (4)
  - COUGH [None]
  - INJECTION SITE SWELLING [None]
  - LUNG DISORDER [None]
  - SWOLLEN TONGUE [None]
